FAERS Safety Report 7294635-9 (Version None)
Quarter: 2011Q1

REPORT INFORMATION
  Report Type: 
  Country: None (occurrence: None)
  Receive Date: 20110202
  Receipt Date: 20110120
  Transmission Date: 20110831
  Serious: Yes (Other)
  Sender: FDA-Public Use
  Company Number: 2010S1000882

PATIENT
  Age: 70 Year
  Sex: Female
  Weight: 73 kg

DRUGS (1)
  1. LIVALO [Suspect]
     Dosage: 2 MG; 1X; PO
     Route: 048

REACTIONS (2)
  - TREMOR [None]
  - CONDITION AGGRAVATED [None]
